FAERS Safety Report 9650675 (Version 3)
Quarter: 2014Q2

REPORT INFORMATION
  Report Type: Spontaneous
  Country: US (occurrence: US)
  Receive Date: 20131029
  Receipt Date: 20140530
  Transmission Date: 20141212
  Serious: Yes (Other)
  Sender: FDA-Public Use
  Company Number: US-PAR PHARMACEUTICAL, INC-2013SCPR007726

PATIENT
  Sex: 0

DRUGS (1)
  1. BUPROPION HCL XL TABLETS [Suspect]
     Indication: DEPRESSION
     Dosage: 1 DF, OD, EVERY MORNING WITH BREAKFAST
     Route: 048
     Dates: start: 201009, end: 201010

REACTIONS (3)
  - Loss of consciousness [Recovered/Resolved]
  - Convulsion [Recovered/Resolved]
  - Weight decreased [Recovered/Resolved]
